FAERS Safety Report 13594314 (Version 2)
Quarter: 2017Q3

REPORT INFORMATION
  Report Type: Spontaneous
  Country: US (occurrence: US)
  Receive Date: 20170530
  Receipt Date: 20170712
  Transmission Date: 20171127
  Serious: No
  Sender: FDA-Public Use
  Company Number: US-PFIZER INC-2017235373

PATIENT
  Age: 78 Year
  Sex: Female
  Weight: 66 kg

DRUGS (1)
  1. ADVIL PM [Suspect]
     Active Substance: DIPHENHYDRAMINE CITRATE\IBUPROFEN
     Indication: ARTHRITIS
     Dosage: 2 CAPLETS, WITH MILK AS NEEDED [IBUPROFEN: 200MG] / [DIPHENHYDRAMINE: 38MG]
     Route: 048

REACTIONS (4)
  - Product commingling [Unknown]
  - Feeling abnormal [Recovered/Resolved]
  - Wrong drug administered [Unknown]
  - Product use in unapproved indication [Unknown]
